FAERS Safety Report 4291431-1 (Version None)
Quarter: 2004Q1

REPORT INFORMATION
  Report Type: 
  Country: None (occurrence: None)
  Receive Date: 20040126
  Receipt Date: 20031029
  Transmission Date: 20041129
  Serious: No
  Sender: FDA-Public Use
  Company Number: USA031051202

PATIENT
  Age: 86 Year
  Sex: Female

DRUGS (3)
  1. FORTEO [Suspect]
     Indication: OSTEOPOROSIS
     Dates: start: 20031001
  2. CALCIUM [Concomitant]
  3. VITAMIN NOS [Concomitant]

REACTIONS (3)
  - FATIGUE [None]
  - GROIN PAIN [None]
  - SOMNOLENCE [None]
